FAERS Safety Report 6899167-5 (Version None)
Quarter: 2010Q3

REPORT INFORMATION
  Report Type: 
  Country: None (occurrence: None)
  Receive Date: 20100802
  Receipt Date: 20080131
  Transmission Date: 20110219
  Serious: Yes (Other)
  Sender: FDA-Public Use
  Company Number: US-PFIZER INC-2007101347

PATIENT
  Sex: Female
  Weight: 65.8 kg

DRUGS (3)
  1. LYRICA [Suspect]
     Indication: FIBROMYALGIA
     Route: 048
     Dates: start: 20071201, end: 20071215
  2. LORAZEPAM [Concomitant]
  3. METHADONE HCL [Concomitant]

REACTIONS (3)
  - CRYING [None]
  - DEPRESSION [None]
  - VISION BLURRED [None]
